FAERS Safety Report 11952455 (Version 23)
Quarter: 2018Q4

REPORT INFORMATION
  Report Type: Report from Study
  Country: BR (occurrence: BR)
  Receive Date: 20160125
  Receipt Date: 20181009
  Transmission Date: 20190204
  Serious: Yes (Other)
  Sender: FDA-Public Use
  Company Number: PHHY2015BR150225

PATIENT
  Age: 63 Year
  Sex: Female
  Weight: 83 kg

DRUGS (15)
  1. LOSARTAN. [Concomitant]
     Active Substance: LOSARTAN
     Indication: HYPERTENSION
     Dosage: 2 DF, QD (SINCE 9 YEARS)
     Route: 048
  2. EXJADE [Suspect]
     Active Substance: DEFERASIROX
     Dosage: 10 MG/KG, QD (2 DF OF 500 MG)
     Route: 048
  3. EXJADE [Suspect]
     Active Substance: DEFERASIROX
     Dosage: 2 DF OF 500 MG FROM MONDAYS TO FRIDAYS
     Route: 048
  4. EXJADE [Suspect]
     Active Substance: DEFERASIROX
     Dosage: 1 DF,  (AT NIGHT)
     Route: 065
  5. LOSARTAN. [Concomitant]
     Active Substance: LOSARTAN
     Dosage: 50 MG, BID
     Route: 048
     Dates: start: 1991
  6. EXJADE [Suspect]
     Active Substance: DEFERASIROX
     Dosage: 10 MG/KG (2 DF OF 500 MG/ 1000 MG), QD
     Route: 048
  7. EXJADE [Suspect]
     Active Substance: DEFERASIROX
     Dosage: 2 DF, QD (AT NIGHT)
     Route: 048
  8. EXJADE [Suspect]
     Active Substance: DEFERASIROX
     Indication: MYELODYSPLASTIC SYNDROME
     Dosage: 25 MG/KG, QD (500 MG, 2 DISPERSIBLE TABLETS) (5 DF (OF 4 TABLETS OF 500 MG AND 1 TABLET OF 100 MG)
     Route: 048
     Dates: start: 201411
  9. EXJADE [Suspect]
     Active Substance: DEFERASIROX
     Dosage: 5 MG/KG, QD (1 DF OF 500 MG)
     Route: 048
  10. EXJADE [Suspect]
     Active Substance: DEFERASIROX
     Dosage: 1000 MG, QD
     Route: 048
  11. EXJADE [Suspect]
     Active Substance: DEFERASIROX
     Dosage: 500 MG,  (FROM MONDAY TO FRIDAY AT NIGHT)
     Route: 048
     Dates: start: 201806
  12. EXJADE [Suspect]
     Active Substance: DEFERASIROX
     Dosage: 2 DF, (AT NIGHT)
     Route: 048
  13. DORFLEX [Concomitant]
     Active Substance: CAFFEINE\DIPYRONE\ORPHENADRINE
     Indication: PRODUCT USED FOR UNKNOWN INDICATION
     Route: 065
  14. TRAMAL [Concomitant]
     Active Substance: TRAMADOL
     Indication: PAIN
     Dosage: 1 DF, PRN SINCE 2 YEARS AGO
     Route: 048
  15. LOSARTAN. [Concomitant]
     Active Substance: LOSARTAN
     Dosage: 25 MG, BID
     Route: 048

REACTIONS (53)
  - Cataract [Not Recovered/Not Resolved]
  - Dizziness [Recovered/Resolved]
  - Depressed mood [Unknown]
  - Abdominal distension [Not Recovered/Not Resolved]
  - Chromaturia [Not Recovered/Not Resolved]
  - Inappropriate schedule of product administration [Not Recovered/Not Resolved]
  - Joint effusion [Not Recovered/Not Resolved]
  - Chondropathy [Not Recovered/Not Resolved]
  - Haemorrhage subcutaneous [Unknown]
  - Malaise [Recovering/Resolving]
  - Visual impairment [Not Recovered/Not Resolved]
  - Back pain [Unknown]
  - Haemorrhoids [Not Recovered/Not Resolved]
  - Nausea [Unknown]
  - Faeces discoloured [Not Recovered/Not Resolved]
  - Anal haemorrhage [Not Recovered/Not Resolved]
  - Burning sensation [Not Recovered/Not Resolved]
  - Peripheral swelling [Not Recovered/Not Resolved]
  - Amnesia [Unknown]
  - Diarrhoea [Recovered/Resolved]
  - Dyspepsia [Recovering/Resolving]
  - Gastritis [Recovering/Resolving]
  - Feeding disorder [Unknown]
  - Joint swelling [Unknown]
  - Asthenia [Recovered/Resolved]
  - Pain [Unknown]
  - Hypoacusis [Not Recovered/Not Resolved]
  - Thrombosis [Unknown]
  - Vomiting [Recovering/Resolving]
  - Diarrhoea [Recovered/Resolved]
  - Frequent bowel movements [Unknown]
  - Abdominal pain upper [Not Recovered/Not Resolved]
  - Labyrinthitis [Not Recovered/Not Resolved]
  - Arthropathy [Unknown]
  - Sadism [Unknown]
  - Retching [Not Recovered/Not Resolved]
  - Diarrhoea [Recovered/Resolved]
  - Drug intolerance [Unknown]
  - Pain in extremity [Unknown]
  - Tooth disorder [Unknown]
  - Herpes virus infection [Unknown]
  - Weight increased [Unknown]
  - Expired product administered [Unknown]
  - Abdominal discomfort [Unknown]
  - Platelet count decreased [Unknown]
  - Ear pain [Not Recovered/Not Resolved]
  - Insomnia [Not Recovered/Not Resolved]
  - Memory impairment [Not Recovered/Not Resolved]
  - Weight decreased [Unknown]
  - Erythema [Unknown]
  - Skin discolouration [Not Recovered/Not Resolved]
  - Breast pain [Unknown]
  - Headache [Not Recovered/Not Resolved]

NARRATIVE: CASE EVENT DATE: 20151228
